FAERS Safety Report 5237250-0 (Version None)
Quarter: 2007Q1

REPORT INFORMATION
  Report Type: 
  Country: None (occurrence: None)
  Receive Date: 20070213
  Receipt Date: 20070201
  Transmission Date: 20070707
  Serious: Yes (Hospitalization, Other)
  Sender: FDA-Public Use
  Company Number: TR-PFIZER INC-2007009017

PATIENT
  Age: 31 Year
  Sex: Male

DRUGS (3)
  1. LITHIUM CARBONATE [Interacting]
     Dosage: DAILY DOSE:1200MG
  2. LAMOTRIGINE [Suspect]
     Dosage: DAILY DOSE:300MG
  3. ESCITALOPRAM OXALATE [Suspect]
     Dosage: DAILY DOSE:10MG

REACTIONS (5)
  - CEREBELLAR SYNDROME [None]
  - DEPRESSIVE SYMPTOM [None]
  - DRUG INTERACTION [None]
  - PNEUMONIA [None]
  - THERAPEUTIC AGENT TOXICITY [None]
